FAERS Safety Report 24644871 (Version 2)
Quarter: 2025Q2

REPORT INFORMATION
  Report Type: Spontaneous
  Country: US (occurrence: US)
  Receive Date: 20241121
  Receipt Date: 20250607
  Transmission Date: 20250717
  Serious: No
  Sender: COHERUS
  Company Number: US-COHERUS BIOSCIENCES, INC-2024-COH-US000366

PATIENT

DRUGS (18)
  1. UDENYCA [Suspect]
     Active Substance: PEGFILGRASTIM-CBQV
     Indication: Hodgkin^s disease
     Dosage: 6 MG, Q3WEEKS
     Route: 058
     Dates: start: 20240508
  2. UDENYCA [Suspect]
     Active Substance: PEGFILGRASTIM-CBQV
     Indication: Neutropenia
  3. VICODIN [Concomitant]
     Active Substance: ACETAMINOPHEN\HYDROCODONE BITARTRATE
  4. EMLA [Concomitant]
     Active Substance: LIDOCAINE\PRILOCAINE
  5. LORAZEPAM [Concomitant]
     Active Substance: LORAZEPAM
  6. Olanzep [Concomitant]
  7. PRILOSEC [Concomitant]
     Active Substance: OMEPRAZOLE MAGNESIUM
  8. ZOFRAN [Concomitant]
     Active Substance: ONDANSETRON HYDROCHLORIDE
  9. COMPAZINE [Concomitant]
     Active Substance: PROCHLORPERAZINE MALEATE
  10. AMLODIPINE [Concomitant]
     Active Substance: AMLODIPINE BESYLATE
  11. OPDIVO [Concomitant]
     Active Substance: NIVOLUMAB
  12. DOXORUBICIN [Concomitant]
     Active Substance: DOXORUBICIN
  13. VINBLASTINE [Concomitant]
     Active Substance: VINBLASTINE
  14. CARBAMAZEPINE [Concomitant]
     Active Substance: CARBAMAZEPINE
  15. ALOXI [Concomitant]
     Active Substance: PALONOSETRON HYDROCHLORIDE
  16. DEXAMETHASONE [Concomitant]
     Active Substance: DEXAMETHASONE
  17. FAMOTIDINE [Concomitant]
     Active Substance: FAMOTIDINE
  18. Amendo [Concomitant]

REACTIONS (3)
  - Accidental exposure to product [Recovered/Resolved]
  - Product administration error [Recovered/Resolved]
  - No adverse event [Unknown]

NARRATIVE: CASE EVENT DATE: 20240508
